FAERS Safety Report 12232311 (Version 1)
Quarter: 2016Q2

REPORT INFORMATION
  Report Type: Report from Study
  Country: GB (occurrence: GB)
  Receive Date: 20160401
  Receipt Date: 20160401
  Transmission Date: 20160815
  Serious: Yes (Hospitalization)
  Sender: FDA-Public Use
  Company Number: GB-GILEAD-2016-0206327

PATIENT
  Sex: Female

DRUGS (3)
  1. SOFOSBUVIR [Suspect]
     Active Substance: SOFOSBUVIR
     Indication: PRODUCT USED FOR UNKNOWN INDICATION
     Dosage: 400 MG, UNK
     Route: 065
  2. DAKLINZA [Concomitant]
     Active Substance: DACLATASVIR
  3. COPEGUS [Concomitant]
     Active Substance: RIBAVIRIN
     Dosage: 400 UNK, UNK

REACTIONS (1)
  - Memory impairment [Unknown]
